FAERS Safety Report 5242238-X (Version None)
Quarter: 2007Q1

REPORT INFORMATION
  Report Type: 
  Country: None (occurrence: None)
  Receive Date: 20070215
  Receipt Date: 20070215
  Transmission Date: 20070707
  Serious: Yes (Other)
  Sender: FDA-Public Use
  Company Number: None

PATIENT
  Age: 56 Year
  Sex: Female
  Weight: 104.3273 kg

DRUGS (12)
  1. BUPROPION HCL [Suspect]
     Indication: MAJOR DEPRESSION
     Dosage: 300MG 1 Q AM PO
     Route: 048
     Dates: start: 20070117, end: 20070124
  2. CYMBALTA [Concomitant]
  3. KLONOPIN [Concomitant]
  4. NEURONTIN [Concomitant]
  5. SYNTHROID [Concomitant]
  6. ESTRACE [Concomitant]
  7. DIOVAN [Concomitant]
  8. HYDROCHLOROTHIAZIDE [Concomitant]
  9. TOPAMAX [Concomitant]
  10. VESICARE [Concomitant]
  11. AXERT [Concomitant]
  12. OMEPRAZOLE [Concomitant]

REACTIONS (3)
  - FLUSHING [None]
  - PARAESTHESIA [None]
  - PRURITUS GENERALISED [None]
